FAERS Safety Report 16975375 (Version 2)
Quarter: 2019Q4

REPORT INFORMATION
  Report Type: Spontaneous
  Country: US (occurrence: US)
  Receive Date: 20191030
  Receipt Date: 20191107
  Transmission Date: 20200122
  Serious: Yes (Death, Life-Threatening, Other)
  Sender: FDA-Public Use
  Company Number: US-PFIZER INC-2019462550

PATIENT
  Age: 36 Year
  Sex: Male

DRUGS (1)
  1. ALPRAZOLAM. [Suspect]
     Active Substance: ALPRAZOLAM
     Dosage: UNK

REACTIONS (4)
  - Toxicity to various agents [Fatal]
  - Cardiac arrest [Fatal]
  - Pulmonary congestion [Fatal]
  - Pulmonary oedema [Fatal]
